FAERS Safety Report 8428088-1 (Version None)
Quarter: 2012Q2

REPORT INFORMATION
  Report Type: 
  Country: None (occurrence: None)
  Receive Date: 20120611
  Receipt Date: 20120329
  Transmission Date: 20120825
  Serious: No
  Sender: FDA-Public Use
  Company Number: US-ASTRAZENECA-2012SE16086

PATIENT
  Age: 55 Year
  Sex: Female
  Weight: 54.4 kg

DRUGS (10)
  1. RHINOCORT [Suspect]
     Route: 045
  2. SYMTHROID [Concomitant]
  3. VICODIN [Concomitant]
     Indication: CONVULSION
  4. LAMICTAL [Concomitant]
  5. CLONAZEPAM [Concomitant]
     Indication: CONVULSION
  6. VENTOLIN [Concomitant]
  7. MERGE [Concomitant]
  8. ADVAIR DISKUS 100/50 [Concomitant]
  9. SEROQUEL [Suspect]
     Indication: BIPOLAR DISORDER
     Route: 048
  10. BUSPIRONE HCL [Concomitant]
     Indication: ANXIETY

REACTIONS (5)
  - DRUG DOSE OMISSION [None]
  - MANIA [None]
  - OFF LABEL USE [None]
  - INSOMNIA [None]
  - MIGRAINE [None]
